FAERS Safety Report 5842738-5 (Version None)
Quarter: 2008Q3

REPORT INFORMATION
  Report Type: 
  Country: None (occurrence: None)
  Receive Date: 20080808
  Receipt Date: 20080729
  Transmission Date: 20090109
  Serious: Yes (Hospitalization, Other)
  Sender: FDA-Public Use
  Company Number: 08H-163-0314681-00

PATIENT
  Sex: Male

DRUGS (1)
  1. VITAMIN K1 [Suspect]
     Indication: DRUG USE FOR UNKNOWN INDICATION

REACTIONS (2)
  - HAEMORRHAGE NEONATAL [None]
  - POST PROCEDURAL HAEMORRHAGE [None]
